FAERS Safety Report 9117918 (Version 1)
Quarter: 2013Q1

REPORT INFORMATION
  Report Type: Spontaneous
  Country: DE (occurrence: DE)
  Receive Date: 20130225
  Receipt Date: 20130225
  Transmission Date: 20140127
  Serious: Yes (Death, Congenital Anomaly)
  Sender: FDA-Public Use
  Company Number: GXKR2013DE000960

PATIENT
  Sex: 0

DRUGS (2)
  1. VENLAFAXINE [Suspect]
     Dosage: MATERNAL DOSE: 150 MG/D, START DATE IN 2008, AFTER CESSATION PSYCHO-THERAPY
     Route: 064
  2. FOLIC ACID [Concomitant]
     Dosage: MATERNAL DOSE: UNK UKN, UNK
     Route: 064
     Dates: start: 20110823, end: 20120126

REACTIONS (3)
  - Coarctation of the aorta [Fatal]
  - Foetal death [Fatal]
  - Foetal exposure during pregnancy [Unknown]
